FAERS Safety Report 8355836-1 (Version None)
Quarter: 2012Q2

REPORT INFORMATION
  Report Type: 
  Country: None (occurrence: None)
  Receive Date: 20120514
  Receipt Date: 20120129
  Transmission Date: 20120825
  Serious: No
  Sender: FDA-Public Use
  Company Number: US-PFIZER INC-2012111173

PATIENT
  Sex: Female

DRUGS (2)
  1. PREMARIN [Suspect]
     Dosage: 2.5 MG, DAILY
  2. INSULIN [Concomitant]
     Dosage: UNK

REACTIONS (3)
  - BLOOD TRIGLYCERIDES DECREASED [None]
  - THERAPEUTIC RESPONSE UNEXPECTED [None]
  - BLOOD GLUCOSE DECREASED [None]
